FAERS Safety Report 7393123-9 (Version None)
Quarter: 2011Q2

REPORT INFORMATION
  Report Type: 
  Country: None (occurrence: None)
  Receive Date: 20110404
  Receipt Date: 20110330
  Transmission Date: 20111010
  Serious: Yes (Other)
  Sender: FDA-Public Use
  Company Number: JP-ABBOTT-11P-087-0713227-00

PATIENT
  Age: 80 Year
  Sex: Female

DRUGS (5)
  1. KLARICID [Suspect]
     Indication: MYCOBACTERIAL INFECTION
     Dates: start: 19970901
  2. KLARICID [Suspect]
     Dates: start: 20090801
  3. QUINOLONES [Concomitant]
     Indication: MYCOBACTERIAL INFECTION
  4. STREPTOMYCIN [Concomitant]
     Indication: MYCOBACTERIAL INFECTION
     Route: 030
  5. ETHAMBUTOL HYDROCHLORIDE [Concomitant]
     Indication: MYCOBACTERIAL INFECTION

REACTIONS (1)
  - PULMONARY TUBERCULOSIS [None]
